FAERS Safety Report 7988772-0 (Version None)
Quarter: 2011Q4

REPORT INFORMATION
  Report Type: 
  Country: None (occurrence: None)
  Receive Date: 20111219
  Receipt Date: 20111212
  Transmission Date: 20120403
  Serious: Yes (Hospitalization)
  Sender: FDA-Public Use
  Company Number: US-BIOGENIDEC-2011BI044019

PATIENT
  Sex: Male

DRUGS (3)
  1. AVONEX [Suspect]
     Route: 030
  2. AVONEX [Suspect]
     Indication: MULTIPLE SCLEROSIS
     Route: 030
     Dates: start: 20030913
  3. TYSABRI [Concomitant]
     Route: 042
     Dates: start: 20050101, end: 20050101

REACTIONS (4)
  - AMNESIA [None]
  - INFLUENZA LIKE ILLNESS [None]
  - JOINT INJURY [None]
  - CORONARY ARTERY DISEASE [None]
